FAERS Safety Report 9293913 (Version 1)
Quarter: 2013Q1

REPORT INFORMATION
  Report Type: Spontaneous
  Country: US (occurrence: None)
  Receive Date: 20121218
  Receipt Date: 20121218
  Transmission Date: 20140127
  Serious: Yes (Other)
  Sender: FDA-Public Use
  Company Number: PHEH2012US013119

PATIENT
  Age: 76 Year
  Sex: Female

DRUGS (1)
  1. FEMARA [Suspect]
     Route: 048

REACTIONS (4)
  - Foot fracture [None]
  - Rotator cuff syndrome [None]
  - Back disorder [None]
  - Dizziness [None]
